FAERS Safety Report 8583407-0 (Version None)
Quarter: 2012Q3

REPORT INFORMATION
  Report Type: 
  Country: None (occurrence: None)
  Receive Date: 20120809
  Receipt Date: 20120726
  Transmission Date: 20120928
  Serious: Yes (Hospitalization, Other)
  Sender: FDA-Public Use
  Company Number: GB-WATSON-2012-10444

PATIENT
  Age: 36 Year
  Sex: Female

DRUGS (21)
  1. FUROSEMIDE [Concomitant]
     Indication: PRODUCT USED FOR UNKNOWN INDICATION
     Dosage: UNK
     Route: 065
  2. RAMIPRIL [Concomitant]
     Indication: PRODUCT USED FOR UNKNOWN INDICATION
     Dosage: UNK
     Route: 048
  3. CLOZAPINE [Suspect]
     Dosage: 250 MG, DAILY
     Route: 048
     Dates: start: 20050501, end: 20050519
  4. FERROUS SULFATE TAB [Suspect]
     Indication: PRODUCT USED FOR UNKNOWN INDICATION
     Dosage: 200 MG, BID
     Route: 065
  5. ARIPIPRAZOLE [Concomitant]
     Indication: PRODUCT USED FOR UNKNOWN INDICATION
     Dosage: UNK
     Route: 065
  6. PERINDOPRIL ERBUMINE [Suspect]
     Indication: PRODUCT USED FOR UNKNOWN INDICATION
     Dosage: 2 MG, DAILY
     Route: 048
  7. CLOZARIL [Suspect]
     Dosage: 250 MG, DAILY
     Route: 048
     Dates: start: 20050501, end: 20050519
  8. ATORVASTATIN [Concomitant]
     Indication: PRODUCT USED FOR UNKNOWN INDICATION
     Dosage: UNK
     Route: 065
  9. CLOZAPINE [Suspect]
     Dosage: 250 MG, DAILY
     Route: 048
     Dates: start: 20080519
  10. CLOZARIL [Suspect]
     Indication: SCHIZOPHRENIA
     Dosage: 250 MG, DAILY
     Route: 048
     Dates: start: 20060605, end: 20060713
  11. BENDROFLUAZIDE [Concomitant]
     Indication: HYPERTENSION
     Dosage: UNK
     Route: 065
  12. DIAZEPAM [Suspect]
     Indication: PRODUCT USED FOR UNKNOWN INDICATION
     Dosage: UNK
     Route: 065
  13. CLOZAPINE [Suspect]
     Indication: SCHIZOPHRENIA
     Dosage: UNK
     Route: 048
     Dates: start: 20080605
  14. ABILIFY [Concomitant]
     Indication: PRODUCT USED FOR UNKNOWN INDICATION
     Dosage: UNK
     Route: 065
  15. FOLIC ACID [Suspect]
     Indication: PRODUCT USED FOR UNKNOWN INDICATION
     Dosage: 5 MG, QD
     Route: 048
  16. CLOZAPINE [Suspect]
     Dosage: UNK
     Route: 065
     Dates: start: 20060605, end: 20060713
  17. LACTULOSE [Suspect]
     Indication: PRODUCT USED FOR UNKNOWN INDICATION
     Dosage: 10 ML, PRN
     Route: 065
  18. LANSOPRAZOLE [Suspect]
     Indication: PRODUCT USED FOR UNKNOWN INDICATION
     Dosage: 30 MG, DAILY
     Route: 048
  19. ZOPICLONE (UNKNOWN) [Suspect]
     Indication: PRODUCT USED FOR UNKNOWN INDICATION
     Dosage: 3.75 MG, DAILY, NOCTE
     Route: 065
  20. TRIMETHOPRIM [Suspect]
     Indication: URINARY TRACT INFECTION
     Dosage: UNK
     Route: 065
  21. ZOPICLONE [Concomitant]
     Indication: PRODUCT USED FOR UNKNOWN INDICATION
     Dosage: UNK
     Route: 065

REACTIONS (22)
  - MALAISE [None]
  - DIABETES MELLITUS [None]
  - SKIN DISORDER [None]
  - THROMBOCYTOSIS [None]
  - PHYSICAL ASSAULT [None]
  - ABDOMINAL TENDERNESS [None]
  - IRON DEFICIENCY ANAEMIA [None]
  - CONSTIPATION [None]
  - HYPERTENSION [None]
  - STAPHYLOCOCCAL INFECTION [None]
  - MEAN CELL VOLUME DECREASED [None]
  - HIATUS HERNIA [None]
  - MONOCYTE COUNT INCREASED [None]
  - PYREXIA [None]
  - SINUS TACHYCARDIA [None]
  - AGGRESSION [None]
  - CARDIAC MURMUR [None]
  - BODY MASS INDEX DECREASED [None]
  - NEUTROPHIL COUNT INCREASED [None]
  - URINARY TRACT INFECTION [None]
  - WHITE BLOOD CELL COUNT INCREASED [None]
  - WHITE BLOOD CELL DISORDER [None]
